FAERS Safety Report 15734389 (Version 1)
Quarter: 2018Q4

REPORT INFORMATION
  Report Type: Spontaneous
  Country: US (occurrence: US)
  Receive Date: 20181203
  Receipt Date: 20181203
  Transmission Date: 20190205
  Serious: No
  Sender: FDA-Public Use
  Company Number: None

PATIENT
  Age: 46 Year
  Sex: Female
  Weight: 54 kg

DRUGS (8)
  1. AIMOVIG [Suspect]
     Active Substance: ERENUMAB-AOOE
     Indication: MIGRAINE
     Dosage: ?          QUANTITY:1 INJECTION(S);OTHER FREQUENCY:ONCE EVERY 30 DAYS;?
     Route: 058
     Dates: start: 20180915
  2. SEASONALE [Concomitant]
     Active Substance: ETHINYL ESTRADIOL\LEVONORGESTREL
  3. AIMOVIG [Concomitant]
     Active Substance: ERENUMAB-AOOE
  4. CENTRUM MULTIVITAMIN [Concomitant]
  5. ADVIL [Concomitant]
     Active Substance: IBUPROFEN
  6. ALEVE [Concomitant]
     Active Substance: NAPROXEN SODIUM
  7. WELLBUTRIN [Concomitant]
     Active Substance: BUPROPION HYDROCHLORIDE
  8. PRISTIQ EXTENDED-RELEASE [Concomitant]
     Active Substance: DESVENLAFAXINE SUCCINATE

REACTIONS (4)
  - Injection site mass [None]
  - Injection site pruritus [None]
  - Injection site warmth [None]
  - Injection site erythema [None]

NARRATIVE: CASE EVENT DATE: 20181203
